FAERS Safety Report 13906261 (Version 5)
Quarter: 2018Q1

REPORT INFORMATION
  Report Type: Report from Study
  Country: US (occurrence: US)
  Receive Date: 20170825
  Receipt Date: 20180123
  Transmission Date: 20180508
  Serious: Yes (Other)
  Sender: FDA-Public Use
  Company Number: PHHY2017US122125

PATIENT
  Age: 43 Year
  Sex: Female

DRUGS (1)
  1. GILENYA [Suspect]
     Active Substance: FINGOLIMOD HYDROCHLORIDE
     Indication: MULTIPLE SCLEROSIS
     Dosage: UNK, QD
     Route: 048

REACTIONS (6)
  - Musculoskeletal chest pain [Recovered/Resolved]
  - Angina pectoris [Unknown]
  - Vision blurred [Unknown]
  - Fatigue [Unknown]
  - Pain in extremity [Unknown]
  - Dry skin [Unknown]

NARRATIVE: CASE EVENT DATE: 201707
